FAERS Safety Report 7819991-1 (Version None)
Quarter: 2011Q4

REPORT INFORMATION
  Report Type: 
  Country: None (occurrence: None)
  Receive Date: 20111018
  Receipt Date: 20111014
  Transmission Date: 20120403
  Serious: Yes (Other)
  Sender: FDA-Public Use
  Company Number: US-PFIZER INC-2011204680

PATIENT
  Sex: Female
  Weight: 63.492 kg

DRUGS (9)
  1. AMLODIPINE [Concomitant]
     Indication: BLOOD PRESSURE ABNORMAL
     Dosage: 10 MG, 1X/DAY
     Route: 048
  2. PLAVIX [Concomitant]
     Indication: ANTICOAGULANT THERAPY
     Dosage: 75 MG, 1X/DAY
     Route: 048
  3. PREDNISONE [Concomitant]
     Indication: ARTHRITIS
     Dosage: 10MG ONE TO FOUR TIMES A DAY AS NEEDED
     Route: 048
  4. REVATIO [Suspect]
     Indication: SCLERODERMA
     Dosage: 20 MG, 3X/DAY
     Route: 048
     Dates: start: 20090101, end: 20110601
  5. OMEPRAZOLE [Concomitant]
     Indication: DYSPEPSIA
     Dosage: 40 MG, 1X/DAY
     Route: 048
  6. LYRICA [Concomitant]
     Dosage: UNK
     Route: 048
  7. LEVOTHYROXINE [Concomitant]
     Indication: THYROID DISORDER
     Dosage: 75 UG, UNK
     Route: 048
  8. OXYCODONE [Concomitant]
     Indication: PAIN
     Dosage: TWO TABLETS OF AN UNKNOWN DOSE EVERY FOUR HOURS
     Route: 048
  9. CYMBALTA [Concomitant]
     Dosage: UNK
     Route: 048

REACTIONS (1)
  - PAIN [None]
